FAERS Safety Report 7456363 (Version 3)
Quarter: 2014Q3

REPORT INFORMATION
  Report Type: Report from Study
  Country: US (occurrence: US)
  Receive Date: 20100707
  Receipt Date: 20140924
  Transmission Date: 20150326
  Serious: Yes (Hospitalization)
  Sender: FDA-Public Use
  Company Number: PHHO2010US10007

PATIENT
  Age: 60 Year
  Sex: Male
  Weight: 73.47 kg

DRUGS (12)
  1. AFINITOR [Suspect]
     Active Substance: EVEROLIMUS
     Indication: OESOPHAGEAL CARCINOMA
     Dosage: 10 MG, QD
     Route: 048
     Dates: start: 20100112, end: 20100517
  2. REGLAN [Concomitant]
     Active Substance: METOCLOPRAMIDE HYDROCHLORIDE
     Dosage: 10 MG, UNK
  3. ASPIRIN. [Concomitant]
     Active Substance: ASPIRIN
     Dosage: 8 MG, QD
  4. SORIATANE [Concomitant]
     Active Substance: ACITRETIN
     Dosage: 25 MG, UNK
  5. MULTI VITAMIN [Concomitant]
     Active Substance: VITAMINS
     Dosage: UNK
  6. CHLORPHENIRAMINE MALEATE AND PSEUDOEPHEDRINE HYDROCHLORIDE [Concomitant]
     Active Substance: CHLORPHENIRAMINE MALEATE\PSEUDOEPHEDRINE HYDROCHLORIDE
     Dosage: 8 MG, BID
  7. OMEPRAZOLE. [Concomitant]
     Active Substance: OMEPRAZOLE
  8. NITROGLYCERIN. [Concomitant]
     Active Substance: NITROGLYCERIN
  9. MEGACE [Concomitant]
     Active Substance: MEGESTROL ACETATE
     Dosage: 40 MG, BID
  10. FENOFIBRATE. [Concomitant]
     Active Substance: FENOFIBRATE
  11. PRILOSEC [Concomitant]
     Active Substance: OMEPRAZOLE MAGNESIUM
     Dosage: UNK
  12. MORPHINE [Concomitant]
     Active Substance: MORPHINE

REACTIONS (8)
  - Chest discomfort [Unknown]
  - Vomiting [Unknown]
  - Asthenia [Unknown]
  - Coronary artery occlusion [Unknown]
  - Nausea [Unknown]
  - Chest pain [Unknown]
  - Cachexia [Unknown]
  - Acute myocardial infarction [Unknown]

NARRATIVE: CASE EVENT DATE: 20100526
